FAERS Safety Report 12243073 (Version 1)
Quarter: 2016Q2

REPORT INFORMATION
  Report Type: Spontaneous
  Country: US (occurrence: US)
  Receive Date: 20160406
  Receipt Date: 20160406
  Transmission Date: 20160815
  Serious: No
  Sender: FDA-Public Use
  Company Number: US-SA-2015SA068181

PATIENT
  Age: 99 Year
  Sex: Female

DRUGS (1)
  1. ALLEGRA-D [Suspect]
     Active Substance: FEXOFENADINE\PSEUDOEPHEDRINE
     Dosage: TAKEN FROM: 5 DAYS AGO?DOSE AND DAILY DOSE: 60 MG/120 MG 2 TIMES DAILY
     Route: 048
     Dates: end: 20150518

REACTIONS (1)
  - Constipation [Unknown]
